FAERS Safety Report 17778310 (Version 1)
Quarter: 2020Q2

REPORT INFORMATION
  Report Type: Spontaneous
  Country: FR (occurrence: FR)
  Receive Date: 20200513
  Receipt Date: 20200513
  Transmission Date: 20200714
  Serious: Yes (Hospitalization)
  Sender: FDA-Public Use
  Company Number: FR-PFIZER INC-2020187994

PATIENT
  Age: 44 Year
  Sex: Male
  Weight: 81 kg

DRUGS (2)
  1. ZYVOXID [Suspect]
     Active Substance: LINEZOLID
     Indication: STAPHYLOCOCCAL BACTERAEMIA
     Dosage: 600 MG, 2X/DAY
     Route: 048
     Dates: start: 20191013, end: 20191020
  2. AXEPIM [Suspect]
     Active Substance: CEFEPIME HYDROCHLORIDE
     Indication: STAPHYLOCOCCAL BACTERAEMIA
     Dosage: UNK
     Route: 041
     Dates: start: 20191011, end: 20191022

REACTIONS (1)
  - Drug reaction with eosinophilia and systemic symptoms [Recovered/Resolved]

NARRATIVE: CASE EVENT DATE: 20191020
